FAERS Safety Report 19856350 (Version 1)
Quarter: 2021Q3

REPORT INFORMATION
  Report Type: Spontaneous
  Country: JP (occurrence: JP)
  Receive Date: 20210920
  Receipt Date: 20210920
  Transmission Date: 20211014
  Serious: Yes (Hospitalization, Other)
  Sender: FDA-Public Use
  Company Number: JP-JNJFOC-20210929931

PATIENT
  Age: 50 Year
  Sex: Female
  Weight: 75 kg

DRUGS (4)
  1. TOPIRAMATE. [Suspect]
     Active Substance: TOPIRAMATE
     Route: 048
     Dates: end: 20210621
  2. TOPIRAMATE. [Suspect]
     Active Substance: TOPIRAMATE
     Indication: DECREASED APPETITE
     Route: 048
     Dates: start: 20210512
  3. TOPIRAMATE. [Suspect]
     Active Substance: TOPIRAMATE
     Route: 048
  4. CONTOMIN [CHLORPROMAZINE HIBENZATE] [Suspect]
     Active Substance: CHLORPROMAZINE HIBENZATE
     Indication: PRODUCT USED FOR UNKNOWN INDICATION
     Route: 065
     Dates: start: 20210506, end: 20210707

REACTIONS (3)
  - Acute kidney injury [Recovered/Resolved]
  - Off label use [Unknown]
  - Product use in unapproved indication [Unknown]

NARRATIVE: CASE EVENT DATE: 20210512
